FAERS Safety Report 8995143 (Version 1)
Quarter: 2013Q1

REPORT INFORMATION
  Report Type: Spontaneous
  Country: US (occurrence: US)
  Receive Date: 20130102
  Receipt Date: 20130102
  Transmission Date: 20140127
  Serious: Yes (Hospitalization)
  Sender: FDA-Public Use
  Company Number: US-GILEAD-2012-0063813

PATIENT
  Age: 65 Year
  Sex: Female

DRUGS (3)
  1. LETAIRIS [Suspect]
     Indication: PULMONARY HYPERTENSION
     Dosage: 10 MG, QD
     Dates: start: 20120113
  2. LETAIRIS [Suspect]
     Indication: DECREASED APPETITE
  3. ADCIRCA [Suspect]

REACTIONS (4)
  - Pneumonia [Not Recovered/Not Resolved]
  - Syncope [Not Recovered/Not Resolved]
  - Oxygen supplementation [Unknown]
  - Somnolence [Unknown]
